FAERS Safety Report 10725411 (Version 1)
Quarter: 2015Q1

REPORT INFORMATION
  Report Type: Spontaneous
  Country: US (occurrence: US)
  Receive Date: 20150121
  Receipt Date: 20150121
  Transmission Date: 20150721
  Serious: Yes (Other)
  Sender: FDA-Public Use
  Company Number: US-GLAXOSMITHKLINE-US2015005969

PATIENT
  Age: 66 Year
  Sex: Male

DRUGS (13)
  1. VOTRIENT [Suspect]
     Active Substance: PAZOPANIB HYDROCHLORIDE
     Dosage: 600 MG, QD
     Route: 048
     Dates: end: 201412
  2. CALCITROL [Concomitant]
     Active Substance: CALCITRIOL
  3. VITAMIN D2 [Concomitant]
     Active Substance: ERGOCALCIFEROL
  4. RENVELA [Concomitant]
     Active Substance: SEVELAMER CARBONATE
  5. CHEMOTHERAPY [Concomitant]
     Active Substance: UNSPECIFIED INGREDIENT
     Indication: RENAL CANCER METASTATIC
     Dosage: UNK
     Dates: start: 2010
  6. VOTRIENT [Suspect]
     Active Substance: PAZOPANIB HYDROCHLORIDE
     Indication: RENAL CANCER METASTATIC
     Dosage: 800 MG, QD
     Route: 048
     Dates: start: 20130512
  7. LEVOTHYROXINE [Concomitant]
     Active Substance: LEVOTHYROXINE
  8. MONOXIDIL [Concomitant]
  9. URSODIOL. [Concomitant]
     Active Substance: URSODIOL
  10. ATIVAN [Concomitant]
     Active Substance: LORAZEPAM
  11. LIQUACEL [Concomitant]
  12. FINASTERIDE. [Concomitant]
     Active Substance: FINASTERIDE
  13. ONDANSETRON [Concomitant]
     Active Substance: ONDANSETRON

REACTIONS (5)
  - Drug effect increased [Recovered/Resolved]
  - Nausea [Unknown]
  - Squamous cell carcinoma [Not Recovered/Not Resolved]
  - Drug effect decreased [Unknown]
  - Diarrhoea [Unknown]

NARRATIVE: CASE EVENT DATE: 201307
